FAERS Safety Report 7180644-7 (Version None)
Quarter: 2010Q4

REPORT INFORMATION
  Report Type: 
  Country: None (occurrence: None)
  Receive Date: 20101221
  Receipt Date: 20101214
  Transmission Date: 20110411
  Serious: Yes (Other)
  Sender: FDA-Public Use
  Company Number: US-US-EMD SERONO, INC.-7032238

PATIENT
  Sex: Male
  Weight: 91 kg

DRUGS (4)
  1. REBIF [Suspect]
     Indication: MULTIPLE SCLEROSIS
     Route: 058
     Dates: start: 20100801
  2. UNSPECIFIED MEDICATIONS [Concomitant]
  3. BLOOD THINNERS [Concomitant]
  4. TOPAMX [Concomitant]
     Indication: CONVULSION
     Dates: start: 20080101

REACTIONS (2)
  - GRAND MAL CONVULSION [None]
  - TREMOR [None]
